FAERS Safety Report 9261844 (Version 1)
Quarter: 2013Q2

REPORT INFORMATION
  Report Type: Spontaneous
  Country: NL (occurrence: NL)
  Receive Date: 20130429
  Receipt Date: 20130429
  Transmission Date: 20140414
  Serious: Yes (Other)
  Sender: FDA-Public Use
  Company Number: NL-PFIZER INC-2013093874

PATIENT
  Age: 90 Year
  Sex: Male
  Weight: 85 kg

DRUGS (7)
  1. LYRICA [Suspect]
     Indication: FACIAL PAIN
     Dosage: 150 MG, UNK
     Dates: start: 20130218, end: 20130226
  2. DIPYRIDAMOLE [Concomitant]
     Dosage: 200 MG, UNK
  3. OMEPRAZOL [Concomitant]
     Dosage: 20 MG, UNK
  4. COLECALCIFEROL [Concomitant]
     Dosage: 50.000 IU, UNK
  5. AMLODIPINE [Concomitant]
     Dosage: 10 MG, UNK
  6. CALCIUMCARBONATE/DIGESTIVES/HERBAL/MAGHYDROXIDE/SODBICARB [Concomitant]
     Dosage: 12.5 MG, UNK
  7. VALSARTAN [Concomitant]
     Dosage: 12.5 MG, UNK

REACTIONS (2)
  - Renal impairment [Recovering/Resolving]
  - Urinary tract infection [Unknown]
